FAERS Safety Report 16757534 (Version 2)
Quarter: 2019Q3

REPORT INFORMATION
  Report Type: Report from Study
  Country: US (occurrence: US)
  Receive Date: 20190830
  Receipt Date: 20190906
  Transmission Date: 20191005
  Serious: No
  Sender: FDA-Public Use
  Company Number: PHEH2019US036017

PATIENT
  Sex: Female

DRUGS (3)
  1. TREPROSTINIL. [Suspect]
     Active Substance: TREPROSTINIL
     Indication: PULMONARY ARTERIAL HYPERTENSION
     Dosage: 38.3 NG/KG/MIN, CONTINUOUS
     Route: 042
     Dates: start: 20190621
  2. ADCIRCA [Concomitant]
     Active Substance: TADALAFIL
     Indication: PULMONARY ARTERIAL HYPERTENSION
     Route: 065
  3. TREPROSTINIL. [Suspect]
     Active Substance: TREPROSTINIL
     Dosage: 38.3 NG/KG/MIN, CONTINUOUS
     Route: 042
     Dates: start: 20190621

REACTIONS (3)
  - Complication associated with device [Unknown]
  - Skin irritation [Unknown]
  - Skin exfoliation [Unknown]
